FAERS Safety Report 4374187-3 (Version None)
Quarter: 2004Q2

REPORT INFORMATION
  Report Type: 
  Country: None (occurrence: None)
  Receive Date: 20040603
  Receipt Date: 20040525
  Transmission Date: 20050107
  Serious: Yes (Life-Threatening, Hospitalization)
  Sender: FDA-Public Use
  Company Number: USA-2004-0013181

PATIENT
  Age: 76 Year
  Sex: Female

DRUGS (10)
  1. CEFDITOREN PIVOXIL (SIMILAR TO NDA 21-222) (CEFDITOREN PIVOXIL) [Suspect]
     Indication: NASOPHARYNGITIS
     Dosage: 300 MG, BID, ORAL
     Route: 048
     Dates: start: 20040209, end: 20040210
  2. FLAVERIC (BENPROPERINE PHOSPHATE) [Concomitant]
  3. ANTOBRON (AMBROXOL HYDROCHLORIDE) [Concomitant]
  4. BUFFERIN [Concomitant]
  5. NEUROVITAN (RIBOFLAVIN, PYRIDOXINE HYDROCHLORIDE, OCTOTIAMINE, CYANOCO [Concomitant]
  6. LISINOPRIL [Concomitant]
  7. RESMIT (MEDAZEPAM) [Concomitant]
  8. MEVAROTIN (PRAVASTATIN SODIUM) [Concomitant]
  9. METHYLCOBAL [Concomitant]
  10. YM POWDER [Concomitant]

REACTIONS (3)
  - ANAPHYLACTOID REACTION [None]
  - LYMPHOCYTE STIMULATION TEST POSITIVE [None]
  - RESPIRATORY FAILURE [None]
